FAERS Safety Report 5891544-4 (Version None)
Quarter: 2008Q3

REPORT INFORMATION
  Report Type: 
  Country: None (occurrence: None)
  Receive Date: 20080922
  Receipt Date: 20070211
  Transmission Date: 20090109
  Serious: Yes (Disabling)
  Sender: FDA-Public Use
  Company Number: IT-ROCHE-571424

PATIENT
  Sex: Female

DRUGS (2)
  1. PEGASYS [Suspect]
     Route: 065
     Dates: start: 20060310, end: 20060601
  2. RIBAVIRIN [Suspect]
     Route: 065
     Dates: start: 20060310, end: 20060601

REACTIONS (2)
  - ASTHENIA [None]
  - SYNCOPE [None]
